FAERS Safety Report 5494636-7 (Version None)
Quarter: 2007Q4

REPORT INFORMATION
  Report Type: 
  Country: None (occurrence: None)
  Receive Date: 20071015
  Receipt Date: 20070720
  Transmission Date: 20080405
  Serious: No
  Sender: FDA-Public Use
  Company Number: 2007SP002012

PATIENT
  Age: 72 Year
  Sex: Male

DRUGS (7)
  1. LUNESTA [Suspect]
     Indication: INSOMNIA
     Dosage: 1 MG; HS; ORAL; 2 MG; HS; ORAL, 1 MG HS
     Route: 048
     Dates: start: 20070524, end: 20070527
  2. LUNESTA [Suspect]
     Indication: INSOMNIA
     Dosage: 1 MG; HS; ORAL; 2 MG; HS; ORAL, 1 MG HS
     Route: 048
     Dates: start: 20070528, end: 20070701
  3. LUNESTA [Suspect]
     Indication: INSOMNIA
     Dosage: 1 MG; HS; ORAL; 2 MG; HS; ORAL, 1 MG HS
     Route: 048
     Dates: start: 20070701
  4. SLEEP AID [Concomitant]
  5. MELATONIN [Concomitant]
  6. MAGNESIUM SULFATE [Concomitant]
  7. ADVAIR DISKUS 100/50 [Concomitant]

REACTIONS (7)
  - ASTHENIA [None]
  - CONFUSIONAL STATE [None]
  - DRUG INEFFECTIVE [None]
  - FEELING JITTERY [None]
  - INSOMNIA [None]
  - IRRITABILITY [None]
  - SINUSITIS [None]
